FAERS Safety Report 4495805-5 (Version None)
Quarter: 2004Q4

REPORT INFORMATION
  Report Type: 
  Country: None (occurrence: None)
  Receive Date: 20041104
  Receipt Date: 20041015
  Transmission Date: 20050328
  Serious: Yes (Life-Threatening, Hospitalization)
  Sender: FDA-Public Use
  Company Number: 20041000433

PATIENT
  Age: 16 Year
  Sex: Female

DRUGS (16)
  1. GLYCOPYRROLATE [Suspect]
     Indication: INTUBATION
     Dosage: 0.5 MG ONCE IV
     Route: 042
  2. BREVIBLOC [Suspect]
     Indication: BLOOD PRESSURE
     Dosage: 80 MG ONCE IV
     Route: 042
  3. BREVIBLOC [Suspect]
     Indication: BLOOD PRESSURE
     Dosage: 10 MG ONCE IV
     Route: 042
  4. DIAZEPAM (1 MG/2 ML) [Suspect]
     Indication: ANXIETY
     Dosage: 2 MG ONCE IV
     Route: 042
  5. PHENYLEPHRINE (TOPICAL 0.5%) [Suspect]
     Indication: INTUBATION
     Dosage: 0.5 % ONCE IN
  6. ISOFLURANE [Suspect]
     Indication: MAINTENANCE OF ANAESTHESIA
  7. NITROUS OXIDE [Suspect]
     Indication: MAINTENANCE OF ANAESTHESIA
  8. CEFAZOLIN [Concomitant]
  9. DEXAMETHASONE [Concomitant]
  10. PROPOFOL [Concomitant]
  11. FENTANYL (50 MICROGRAM/ML) [Concomitant]
  12. VECURONIUM [Concomitant]
  13. OXYGEN [Concomitant]
  14. LIDOCAINE W/EPINEPHRINE ^SAD^ [Concomitant]
  15. LIDOCAINE (TOPICAL, 40MG/ML) [Concomitant]
  16. LIDOCAINE (20MG/ML) [Concomitant]

REACTIONS (14)
  - ACUTE PULMONARY OEDEMA [None]
  - ANAESTHETIC COMPLICATION [None]
  - BASE EXCESS DECREASED [None]
  - BLOOD CALCIUM DECREASED [None]
  - BLOOD GLUCOSE INCREASED [None]
  - BLOOD PH DECREASED [None]
  - BODY TEMPERATURE DECREASED [None]
  - CARDIAC FAILURE [None]
  - FOAMING AT MOUTH [None]
  - HYPERTENSIVE CRISIS [None]
  - MYOCARDIAL ISCHAEMIA [None]
  - PO2 INCREASED [None]
  - SINUS TACHYCARDIA [None]
  - VENTRICULAR HYPOKINESIA [None]
